FAERS Safety Report 25590895 (Version 1)
Quarter: 2025Q3

REPORT INFORMATION
  Report Type: Spontaneous
  Country: CN (occurrence: CN)
  Receive Date: 20250722
  Receipt Date: 20250722
  Transmission Date: 20251020
  Serious: Yes (Life-Threatening, Hospitalization, Other)
  Sender: ELI LILLY AND COMPANY
  Company Number: CN-ELI_LILLY_AND_COMPANY-CN202507015934

PATIENT
  Age: 69 Year
  Sex: Male
  Weight: 50 kg

DRUGS (3)
  1. PEMETREXED [Suspect]
     Active Substance: PEMETREXED
     Indication: Lung neoplasm malignant
     Route: 041
     Dates: start: 20250224, end: 20250224
  2. SINTILIMAB [Suspect]
     Active Substance: SINTILIMAB
     Indication: Lung neoplasm malignant
     Route: 041
     Dates: start: 20250224, end: 20250224
  3. SODIUM CHLORIDE [Concomitant]
     Active Substance: SODIUM CHLORIDE
     Indication: Product used for unknown indication
     Route: 042

REACTIONS (6)
  - Haemoglobin decreased [Unknown]
  - Abdominal distension [Not Recovered/Not Resolved]
  - Abdominal pain [Not Recovered/Not Resolved]
  - Malignant neoplasm progression [Unknown]
  - Heart rate increased [Unknown]
  - Blood pressure decreased [Unknown]

NARRATIVE: CASE EVENT DATE: 20250414
